FAERS Safety Report 9521261 (Version 1)
Quarter: 2013Q1

REPORT INFORMATION
  Report Type: Spontaneous
  Country: US (occurrence: None)
  Receive Date: 20130305
  Receipt Date: 20130305
  Transmission Date: 20140127
  Serious: Yes (Other)
  Sender: FDA-Public Use
  Company Number: 163-21880-11111197

PATIENT
  Age: 85 Year
  Sex: Female
  Weight: 74.84 kg

DRUGS (2)
  1. REVLIMID [Suspect]
     Indication: PLASMA CELL MYELOMA
     Dosage: 5 MG, 1 IN 2 D, PO
     Route: 048
     Dates: start: 20100209
  2. DEXAMETHASONE (DEXAMETHASONE) (UNKNOWN) [Concomitant]

REACTIONS (9)
  - Drug dose omission [None]
  - Oedema peripheral [None]
  - Diarrhoea [None]
  - Frequent bowel movements [None]
  - Dry skin [None]
  - Pruritus [None]
  - Malaise [None]
  - Flatulence [None]
  - Fatigue [None]
